FAERS Safety Report 4788067-2 (Version None)
Quarter: 2005Q4

REPORT INFORMATION
  Report Type: 
  Country: None (occurrence: None)
  Receive Date: 20051004
  Receipt Date: 20051004
  Transmission Date: 20060501
  Serious: Yes (Life-Threatening, Hospitalization)
  Sender: FDA-Public Use
  Company Number: None

PATIENT
  Age: 86 Year
  Sex: Male
  Weight: 99 kg

DRUGS (14)
  1. LINEZOLID [Suspect]
     Indication: ARTHRITIS INFECTIVE
     Dosage: 600 MG PO BID
     Route: 048
     Dates: start: 20050727, end: 20050930
  2. LINEZOLID [Suspect]
     Indication: STAPHYLOCOCCAL INFECTION
     Dosage: 600 MG PO BID
     Route: 048
     Dates: start: 20050727, end: 20050930
  3. HYDROCODONE 5/ACETAMINOPHEN [Concomitant]
  4. DOCUSATE NA [Concomitant]
  5. FUROSEMIDE [Concomitant]
  6. ISOSORBIDE MONONITRATE [Concomitant]
  7. LACTULOSE [Concomitant]
  8. SYNTHROID [Concomitant]
  9. LOVASTATIN [Concomitant]
  10. METOPROLOL TARTRATE [Concomitant]
  11. MULTIVITAMINS/MINERALS CAP [Concomitant]
  12. OMEPRAZOLE [Concomitant]
  13. PRIMIDONE [Concomitant]
  14. SPIRONOLACTONE [Concomitant]

REACTIONS (1)
  - PANCYTOPENIA [None]
